FAERS Safety Report 5733286-1 (Version None)
Quarter: 2008Q2

REPORT INFORMATION
  Report Type: 
  Country: None (occurrence: None)
  Receive Date: 20080509
  Receipt Date: 20080507
  Transmission Date: 20081010
  Serious: Yes (Hospitalization)
  Sender: FDA-Public Use
  Company Number: B0519336A

PATIENT
  Age: 71 Year
  Sex: Male
  Weight: 80 kg

DRUGS (12)
  1. CEFTAZIDIME [Suspect]
     Indication: PNEUMONIA
     Dosage: 3G PER DAY
     Route: 042
     Dates: start: 20080331, end: 20080403
  2. ISOSORBIDE MONONITRATE [Concomitant]
     Dosage: 120MG PER DAY
  3. DILTIAZEM [Concomitant]
     Dosage: 180MG PER DAY
  4. ATORVASTATIN [Concomitant]
     Dosage: 40MG PER DAY
  5. EZETIMIBE [Concomitant]
     Dosage: 10MG PER DAY
  6. OMEPRAZOLE [Concomitant]
     Dosage: 75MG PER DAY
  7. CARBOCYSTEINE [Concomitant]
     Dosage: 75MG PER DAY
  8. SYMBICORT [Concomitant]
  9. ALBUTEROL [Concomitant]
     Indication: CHRONIC OBSTRUCTIVE PULMONARY DISEASE
     Dosage: 10MG PER DAY
     Route: 055
  10. IPRATROPIUM BROMIDE [Concomitant]
     Indication: CHRONIC OBSTRUCTIVE PULMONARY DISEASE
     Dosage: 2000MCG PER DAY
     Route: 055
  11. ENALAPRIL MALEATE [Concomitant]
     Dosage: 5MG PER DAY
     Route: 048
  12. CO-AMILOFRUSE [Concomitant]
     Route: 048

REACTIONS (2)
  - HAEMATURIA [None]
  - THROMBOCYTOPENIA [None]
